FAERS Safety Report 15417807 (Version 4)
Quarter: 2018Q4

REPORT INFORMATION
  Report Type: Report from Study
  Country: MX (occurrence: MX)
  Receive Date: 20180924
  Receipt Date: 20181005
  Transmission Date: 20190204
  Serious: Yes (Other)
  Sender: FDA-Public Use
  Company Number: PHHY2018MX101245

PATIENT
  Sex: Female
  Weight: 61 kg

DRUGS (9)
  1. CO-DIOVAN [Suspect]
     Active Substance: HYDROCHLOROTHIAZIDE\VALSARTAN
     Indication: HYPERTENSION
     Dosage: 1 DF, (HYDROCHLOROTHIAZIDE 25, VALSARTAN 160MG) QD
     Route: 048
  2. EUTIROX [Concomitant]
     Active Substance: LEVOTHYROXINE SODIUM
     Dosage: 3 DF (75 MG), QOD (WEEKLY) (APPROXIMATELY 30 YEARS AGO)
     Route: 048
  3. ISOPHANE HUMAN INSULIN [Concomitant]
     Active Substance: INSULIN HUMAN
     Indication: DIABETES MELLITUS
     Dosage: 20 U, (15 UNITS IN THE MORNING 5 UNITS IN THE NIGHT) (APPROXIMATELY 1 YEAR AGO)
     Route: 048
  4. METFORMIN [Concomitant]
     Active Substance: METFORMIN HYDROCHLORIDE
     Indication: DIABETES MELLITUS
     Dosage: 3 DF, QD (APPROXIMATELY 25 YEARS AGO)
     Route: 065
  5. CAPTOPRIL. [Suspect]
     Active Substance: CAPTOPRIL
     Indication: HYPERTENSION
     Dosage: 2 OT, QD (20 YEARS AGO)
     Route: 048
  6. DILATREND [Concomitant]
     Active Substance: CARVEDILOL
     Indication: CARDIAC DISORDER
     Dosage: 0.5 DF, QD (AT NIGHT) (APPROXIMATELY 35 YEARS AGO)
     Route: 048
  7. EUTIROX [Concomitant]
     Active Substance: LEVOTHYROXINE SODIUM
     Indication: THYROID DISORDER
     Dosage: 3 DF (100 MG), QOD (WEEKLY) (APPROXIMATELY 30 YEARS AGO)
     Route: 048
  8. DILATREND [Concomitant]
     Active Substance: CARVEDILOL
     Indication: HYPERTENSION
  9. METFORMIN [Concomitant]
     Active Substance: METFORMIN HYDROCHLORIDE
     Dosage: 3 OT, QD (APPROXIMATELY 1 YEAR AGO)
     Route: 065

REACTIONS (4)
  - Cough [Unknown]
  - Cataract [Recovered/Resolved]
  - Micturition urgency [Unknown]
  - Glaucoma [Recovering/Resolving]
